FAERS Safety Report 5281105-2 (Version None)
Quarter: 2007Q1

REPORT INFORMATION
  Report Type: 
  Country: None (occurrence: None)
  Receive Date: 20070323
  Receipt Date: 20070314
  Transmission Date: 20070707
  Serious: No
  Sender: FDA-Public Use
  Company Number: 2007-155432-NL

PATIENT
  Age: 68 Year
  Sex: Female

DRUGS (6)
  1. MIRTAZAPINE [Suspect]
     Indication: ANXIETY
     Dosage: 30 MG ORAL
     Route: 048
     Dates: start: 20060816, end: 20070125
  2. MIRTAZAPINE [Suspect]
     Indication: DEPRESSION
     Dosage: 30 MG ORAL
     Route: 048
     Dates: start: 20060816, end: 20070125
  3. LOSARTAN POTASSIUM [Concomitant]
  4. FRUMIL [Concomitant]
  5. ALPRAZOLAM [Concomitant]
  6. ATORVASTATIN CALCIUM [Concomitant]

REACTIONS (2)
  - APHTHOUS STOMATITIS [None]
  - OEDEMA MOUTH [None]
